FAERS Safety Report 7099625-7 (Version None)
Quarter: 2010Q4

REPORT INFORMATION
  Report Type: 
  Country: None (occurrence: None)
  Receive Date: 20101112
  Receipt Date: 20101108
  Transmission Date: 20110411
  Serious: Yes (Other)
  Sender: FDA-Public Use
  Company Number: US-AMGEN-USASP2010003914

PATIENT

DRUGS (1)
  1. NPLATE [Suspect]
     Indication: IDIOPATHIC THROMBOCYTOPENIC PURPURA

REACTIONS (7)
  - DECREASED APPETITE [None]
  - DEPRESSED MOOD [None]
  - MOOD SWINGS [None]
  - NAUSEA [None]
  - PERSONALITY CHANGE [None]
  - VOMITING [None]
  - WEIGHT DECREASED [None]
